FAERS Safety Report 4903316-5 (Version None)
Quarter: 2006Q1

REPORT INFORMATION
  Report Type: 
  Country: None (occurrence: None)
  Receive Date: 20060206
  Receipt Date: 20060206
  Transmission Date: 20060701
  Serious: Yes (Other)
  Sender: FDA-Public Use
  Company Number: None

PATIENT
  Age: 81 Year
  Sex: Male
  Weight: 74.8435 kg

DRUGS (1)
  1. CREST W/ FLUORIDE [Suspect]
     Dates: start: 20050101, end: 20060203

REACTIONS (2)
  - ORAL MUCOSAL EXFOLIATION [None]
  - PHARMACEUTICAL PRODUCT COMPLAINT [None]
